FAERS Safety Report 9441851 (Version 3)
Quarter: 2014Q1

REPORT INFORMATION
  Report Type: Spontaneous
  Country: None (occurrence: None)
  Receive Date: 20130801
  Receipt Date: 20140129
  Transmission Date: 20141002
  Serious: Yes (Hospitalization, Other)
  Sender: FDA-Public Use
  Company Number: CO-OR-JP-2013-003

PATIENT
  Age: 72 Year
  Sex: Female
  Weight: 48.1 kg

DRUGS (2)
  1. PREDNISOLONE (PREDNISOLONE) [Suspect]
     Indication: SYSTEMIC SCLEROSIS
     Route: 048
     Dates: start: 201001
  2. INSULIN [Concomitant]

REACTIONS (4)
  - Muscle abscess [None]
  - Disseminated tuberculosis [None]
  - Drug interaction [None]
  - Tuberculosis [None]
